FAERS Safety Report 8036895 (Version 3)
Quarter: 2012Q4

REPORT INFORMATION
  Report Type: 
  Country: US (occurrence: US)
  Receive Date: 20110715
  Receipt Date: 20120907
  Transmission Date: 20130627
  Serious: Yes (Hospitalization, Other)
  Sender: FDA-Public Use
  Company Number: US-PFIZER INC-2011158313

PATIENT
  Age: 80 Year
  Sex: Male

DRUGS (8)
  1. AMIODARONE HCL [Suspect]
     Indication: VENTRICULAR TACHYCARDIA
     Dosage: Unk
     Route: 048
  2. AMIODARONE HCL [Suspect]
     Indication: ATRIAL FIBRILLATION
  3. AMIODARONE HCL [Suspect]
     Indication: CARDIAC FAILURE ACUTE
  4. HEPARIN SODIUM [Suspect]
     Indication: PRODUCT USED FOR UNKNOWN INDICATION
     Dosage: Unk
     Route: 065
  5. AMIODARONE HYDROCHLORIDE [Suspect]
     Indication: VENTRICULAR TACHYCARDIA
     Dosage: Unk
     Route: 042
  6. AMIODARONE HYDROCHLORIDE [Suspect]
     Indication: ATRIAL FIBRILLATION
     Dosage: UNK
     Route: 040
  7. AMIODARONE HYDROCHLORIDE [Suspect]
     Indication: CARDIAC FAILURE ACUTE
     Dosage: UNK
     Route: 042
  8. AMIODARONE HYDROCHLORIDE [Suspect]
     Dosage: UNK
     Route: 040

REACTIONS (2)
  - Hypothyroidism [Recovering/Resolving]
  - Heparin-induced thrombocytopenia [Unknown]
